FAERS Safety Report 6379500-3 (Version None)
Quarter: 2009Q3

REPORT INFORMATION
  Report Type: 
  Country: None (occurrence: None)
  Receive Date: 20090928
  Receipt Date: 20090925
  Transmission Date: 20100115
  Serious: Yes (Death)
  Sender: FDA-Public Use
  Company Number: US-EISAI INC.-E2020-05258-SPO-US

PATIENT
  Sex: Male

DRUGS (3)
  1. ARICEPT [Suspect]
     Dosage: UNKNOWN
     Route: 048
     Dates: start: 20090301
  2. REMICADE [Concomitant]
  3. ANTIDEPRESSANTS [Concomitant]
     Indication: DEPRESSION
     Dates: start: 20080101

REACTIONS (3)
  - COMPLETED SUICIDE [None]
  - HALLUCINATION [None]
  - NIGHTMARE [None]
